FAERS Safety Report 5114761-X (Version None)
Quarter: 2006Q3

REPORT INFORMATION
  Report Type: 
  Country: None (occurrence: None)
  Receive Date: 20060922
  Receipt Date: 20060922
  Transmission Date: 20061208
  Serious: No
  Sender: FDA-Public Use
  Company Number: None

PATIENT
  Age: 28 Year
  Sex: Male

DRUGS (1)
  1. OMALIZUMAB [Suspect]
     Dosage: 300 MG IM EVERY 2 WEEKS
     Route: 030

REACTIONS (3)
  - CHEST DISCOMFORT [None]
  - MYCOBACTERIUM AVIUM COMPLEX INFECTION [None]
  - PULMONARY CAVITATION [None]
